FAERS Safety Report 8170298-5 (Version None)
Quarter: 2012Q1

REPORT INFORMATION
  Report Type: 
  Country: None (occurrence: None)
  Receive Date: 20120228
  Receipt Date: 20120224
  Transmission Date: 20120608
  Serious: Yes (Life-Threatening, Hospitalization, Other)
  Sender: FDA-Public Use
  Company Number: PHHY2012BR016506

PATIENT
  Age: 77 Year
  Sex: Female

DRUGS (3)
  1. FORMOTEROL FUMARATE [Suspect]
     Indication: CHRONIC OBSTRUCTIVE PULMONARY DISEASE
     Dosage: 3 DF, QD
  2. FORADIL [Suspect]
     Indication: BRONCHITIS
  3. FORADIL [Suspect]
     Indication: BRONCHOSPASM

REACTIONS (6)
  - HEAD DISCOMFORT [None]
  - TREMOR [None]
  - COMA [None]
  - BLOOD PRESSURE INCREASED [None]
  - MEMORY IMPAIRMENT [None]
  - CAPILLARY FRAGILITY [None]
